FAERS Safety Report 6855047-2 (Version None)
Quarter: 2010Q3

REPORT INFORMATION
  Report Type: 
  Country: None (occurrence: None)
  Receive Date: 20100717
  Receipt Date: 20080909
  Transmission Date: 20110219
  Serious: Yes (Other)
  Sender: FDA-Public Use
  Company Number: US-PFIZER INC-2007107379

PATIENT
  Sex: Female

DRUGS (2)
  1. CHANTIX [Suspect]
  2. SSRI [Suspect]

REACTIONS (2)
  - CONVULSION [None]
  - INTENTIONAL OVERDOSE [None]
